FAERS Safety Report 23962361 (Version 1)
Quarter: 2024Q2

REPORT INFORMATION
  Report Type: Spontaneous
  Country: US (occurrence: US)
  Receive Date: 20240611
  Receipt Date: 20240611
  Transmission Date: 20240716
  Serious: Yes (Disabling)
  Sender: FDA-Public Use
  Company Number: US-DSJP-DSU-2024-125730

PATIENT
  Sex: Male

DRUGS (1)
  1. SAVAYSA [Suspect]
     Active Substance: EDOXABAN TOSYLATE
     Indication: Product used for unknown indication
     Dosage: UNK, STARTED 4 YEARS AGO
     Route: 065
     Dates: start: 2020

REACTIONS (1)
  - Disability [Not Recovered/Not Resolved]
